FAERS Safety Report 8116882-6 (Version None)
Quarter: 2012Q1

REPORT INFORMATION
  Report Type: 
  Country: None (occurrence: None)
  Receive Date: 20120206
  Receipt Date: 20120202
  Transmission Date: 20120608
  Serious: Yes (Life-Threatening, Hospitalization, Other)
  Sender: FDA-Public Use
  Company Number: GXKR2012DE000758

PATIENT

DRUGS (5)
  1. LASIX [Suspect]
     Indication: POLYURIA
     Dosage: 250 MG, UNK
     Route: 042
  2. LASIX [Suspect]
     Indication: CARDIOPULMONARY FAILURE
  3. FUROSEMIDE [Suspect]
     Indication: POLYURIA
     Dosage: 40 MG, UNK
     Route: 042
     Dates: start: 20111013, end: 20111016
  4. FUROSEMIDE [Suspect]
     Indication: CARDIOPULMONARY FAILURE
  5. DIOVAN [Concomitant]

REACTIONS (1)
  - RENAL FAILURE ACUTE [None]
